FAERS Safety Report 18372537 (Version 4)
Quarter: 2020Q4

REPORT INFORMATION
  Report Type: Spontaneous
  Country: PT (occurrence: PT)
  Receive Date: 20201012
  Receipt Date: 20201223
  Transmission Date: 20210114
  Serious: Yes (Hospitalization, Other)
  Sender: FDA-Public Use
  Company Number: PT-MYLANLABS-2020M1085219

PATIENT
  Age: 60 Year
  Sex: Male

DRUGS (4)
  1. OLMESARTAN MEDOXOMIL. [Suspect]
     Active Substance: OLMESARTAN MEDOXOMIL
     Indication: HYPERTENSION
     Dosage: UNK
     Route: 048
  2. VANCOMICINA                        /00314401/ [Concomitant]
     Active Substance: VANCOMYCIN
     Indication: CLOSTRIDIUM DIFFICILE COLITIS
     Dosage: 125 MILLIGRAM, Q6H
     Route: 048
  3. CIPROFLOXACIN. [Suspect]
     Active Substance: CIPROFLOXACIN
     Dosage: 500 MG, BID
     Route: 048
  4. CIPROFLOXACIN. [Suspect]
     Active Substance: CIPROFLOXACIN
     Indication: ORCHITIS
     Dosage: 500 MILLIGRAM, BID
     Route: 048

REACTIONS (14)
  - Clostridium difficile infection [Recovered/Resolved]
  - Iron deficiency anaemia [Recovered/Resolved]
  - Normochromic normocytic anaemia [Recovered/Resolved]
  - Intestinal villi atrophy [Recovered/Resolved]
  - Rash pruritic [Recovered/Resolved]
  - Pyrexia [Recovered/Resolved]
  - Myalgia [Recovered/Resolved]
  - Diarrhoea [Recovered/Resolved]
  - Weight decreased [Recovered/Resolved]
  - Acute generalised exanthematous pustulosis [Recovered/Resolved]
  - Pustule [Recovered/Resolved]
  - Sprue-like enteropathy [Recovered/Resolved]
  - Gastrointestinal disorder [Recovered/Resolved]
  - Rash [Recovered/Resolved]
